FAERS Safety Report 5409759-8 (Version None)
Quarter: 2007Q3

REPORT INFORMATION
  Report Type: 
  Country: None (occurrence: None)
  Receive Date: 20070809
  Receipt Date: 20070802
  Transmission Date: 20080115
  Serious: Yes (Hospitalization)
  Sender: FDA-Public Use
  Company Number: B0482651A

PATIENT
  Age: 4 Year
  Sex: Male

DRUGS (6)
  1. ABACAVIR [Suspect]
     Indication: HIV INFECTION
     Dates: start: 20070706
  2. EFAVIRENZ [Suspect]
     Indication: HIV INFECTION
     Dates: start: 20070706
  3. ZIDOVUDINE [Suspect]
     Indication: HIV INFECTION
     Dates: start: 20070706, end: 20070801
  4. EPIVIR [Suspect]
     Indication: HIV INFECTION
  5. SEPTRIN [Suspect]
     Dates: start: 20070629, end: 20070720
  6. MULTI-VITAMIN [Concomitant]
     Dates: start: 20070629

REACTIONS (5)
  - ANAEMIA [None]
  - COUGH [None]
  - HYPERSENSITIVITY [None]
  - PYREXIA [None]
  - RASH [None]
